FAERS Safety Report 7502706-4 (Version None)
Quarter: 2011Q2

REPORT INFORMATION
  Report Type: 
  Country: None (occurrence: None)
  Receive Date: 20110525
  Receipt Date: 20110120
  Transmission Date: 20111010
  Serious: No
  Sender: FDA-Public Use
  Company Number: US-MYLANLABS-2011S1001473

PATIENT
  Age: 57 Year
  Sex: Female
  Weight: 77.11 kg

DRUGS (4)
  1. ALBUTEROL SULFATE AUTOHALER [Suspect]
     Route: 055
  2. CROMOLYN SODIUM [Suspect]
     Indication: ASTHMA
     Route: 055
     Dates: start: 20110120, end: 20110120
  3. ALBUTEROL SULFATE AUTOHALER [Concomitant]
  4. PREDNISONE TAB [Concomitant]

REACTIONS (4)
  - NERVOUSNESS [None]
  - EXPIRED DRUG ADMINISTERED [None]
  - PARAESTHESIA ORAL [None]
  - HYPOAESTHESIA FACIAL [None]
